FAERS Safety Report 16236437 (Version 1)
Quarter: 2019Q2

REPORT INFORMATION
  Report Type: Spontaneous
  Country: FR (occurrence: FR)
  Receive Date: 20190425
  Receipt Date: 20190425
  Transmission Date: 20190711
  Serious: Yes (Other)
  Sender: FDA-Public Use
  Company Number: FR-TEVA-2019-FR-1042894

PATIENT
  Age: 63 Year
  Sex: Female

DRUGS (2)
  1. ESTREVA, COMPRIME SECABLE [Suspect]
     Active Substance: ESTRADIOL
     Indication: MENOPAUSAL SYMPTOMS PROPHYLAXIS
     Dosage: UNKNOWN DOSAGE
     Route: 048
     Dates: start: 2011, end: 20180831
  2. LUTERAN [Suspect]
     Active Substance: CHLORMADINONE ACETATE
     Indication: MENOPAUSAL SYMPTOMS PROPHYLAXIS
     Dosage: UNKNOWN DOSAGE
     Route: 048
     Dates: start: 2011, end: 20180831

REACTIONS (1)
  - Meningioma [Not Recovered/Not Resolved]

NARRATIVE: CASE EVENT DATE: 201902
